FAERS Safety Report 12814886 (Version 1)
Quarter: 2016Q4

REPORT INFORMATION
  Report Type: Report from Study
  Country: US (occurrence: US)
  Receive Date: 20161005
  Receipt Date: 20161005
  Transmission Date: 20170207
  Serious: No
  Sender: FDA-Public Use
  Company Number: US-AMGEN-USASP2016002747

PATIENT
  Age: 87 Year
  Sex: Female

DRUGS (1)
  1. PROLIA [Suspect]
     Active Substance: DENOSUMAB
     Indication: OSTEOPOROSIS POSTMENOPAUSAL
     Dosage: UNK
     Route: 065
     Dates: start: 201509

REACTIONS (12)
  - Dizziness [Unknown]
  - Rash [Unknown]
  - Nausea [Unknown]
  - Lip swelling [Unknown]
  - Hypersensitivity [Unknown]
  - Feeling hot [Unknown]
  - Burning sensation [Unknown]
  - Cheilitis [Unknown]
  - Pruritus [Unknown]
  - Abdominal pain upper [Recovered/Resolved]
  - Macule [Unknown]
  - Joint swelling [Unknown]

NARRATIVE: CASE EVENT DATE: 201512
